FAERS Safety Report 6330417-X (Version None)
Quarter: 2009Q3

REPORT INFORMATION
  Report Type: 
  Country: None (occurrence: None)
  Receive Date: 20090826
  Receipt Date: 20090826
  Transmission Date: 20100115
  Serious: Yes (Hospitalization)
  Sender: FDA-Public Use
  Company Number: None

PATIENT
  Age: 31 Year
  Sex: Female
  Weight: 45 kg

DRUGS (2)
  1. EMTRICITABINE AND TENOFOVIR DISOPROXIL FUMARATE [Suspect]
     Indication: HIV INFECTION
     Dosage: 200/300 MG QD ORAL
     Route: 048
     Dates: start: 20070302, end: 20090718
  2. NEVIRAPINE [Suspect]
     Indication: HIV INFECTION
     Dosage: 200 MG BID ORAL
     Route: 048
     Dates: start: 20070302, end: 20090718

REACTIONS (9)
  - ABORTION INFECTED [None]
  - APPENDICITIS [None]
  - DRUG EXPOSURE DURING PREGNANCY [None]
  - MATERNAL ALCOHOL USE [None]
  - OVARIAN MASS [None]
  - PELVIC INFLAMMATORY DISEASE [None]
  - RETAINED PRODUCTS OF CONCEPTION [None]
  - UNWANTED PREGNANCY [None]
  - VIROLOGIC FAILURE [None]
